FAERS Safety Report 15473076 (Version 1)
Quarter: 2018Q4

REPORT INFORMATION
  Report Type: Other
  Country: PL (occurrence: PL)
  Receive Date: 20181008
  Receipt Date: 20181008
  Transmission Date: 20190205
  Serious: Yes (Other)
  Sender: FDA-Public Use
  Company Number: PL-APOTEX-2018AP021631

PATIENT
  Age: 72 Year
  Sex: Male

DRUGS (3)
  1. HEPARIN [Interacting]
     Active Substance: HEPARIN SODIUM
     Indication: PREOPERATIVE CARE
     Dosage: UNFRACTIONATED HEPARIN
     Route: 042
  2. CLOPIDOGREL [Suspect]
     Active Substance: CLOPIDOGREL BISULFATE
     Indication: PREOPERATIVE CARE
     Dosage: 600 MG, UNK
     Route: 048
  3. ACETYLSALICYLIC ACID [Interacting]
     Active Substance: ASPIRIN
     Indication: PREOPERATIVE CARE
     Dosage: 300 MG, UNK
     Route: 048

REACTIONS (6)
  - Upper gastrointestinal haemorrhage [Recovered/Resolved]
  - Contraindicated product administered [Unknown]
  - Haematemesis [Recovered/Resolved]
  - Haemoglobin decreased [Unknown]
  - Gastritis haemorrhagic [Recovered/Resolved]
  - Labelled drug-drug interaction medication error [Unknown]
